FAERS Safety Report 9345402 (Version 1)
Quarter: 2013Q2

REPORT INFORMATION
  Report Type: Report from Study
  Country: US (occurrence: US)
  Receive Date: 20130613
  Receipt Date: 20130613
  Transmission Date: 20140414
  Serious: Yes (Hospitalization, Other)
  Sender: FDA-Public Use
  Company Number: US-ROCHE-1235398

PATIENT
  Sex: Female

DRUGS (1)
  1. CELLCEPT [Suspect]
     Indication: PRODUCT USED FOR UNKNOWN INDICATION
     Route: 065

REACTIONS (7)
  - Post procedural haemorrhage [Unknown]
  - Necrosis [Unknown]
  - Pain in jaw [Unknown]
  - Conjunctival hyperaemia [Unknown]
  - Rhinitis perennial [Unknown]
  - Allergic sinusitis [Unknown]
  - Scleritis [Unknown]
